FAERS Safety Report 26117924 (Version 1)
Quarter: 2025Q4

REPORT INFORMATION
  Report Type: Spontaneous
  Country: BR (occurrence: None)
  Receive Date: 20251203
  Receipt Date: 20251203
  Transmission Date: 20260117
  Serious: Yes (Other)
  Sender: UCB
  Company Number: BR-UCBSA-2025076154

PATIENT
  Age: 38 Year
  Weight: 83 kg

DRUGS (5)
  1. CIMZIA [Suspect]
     Active Substance: CERTOLIZUMAB PEGOL
     Indication: Product used for unknown indication
     Dosage: 400 MILLIGRAM, MONTHLY (QM)
  2. PREGABALIN [Concomitant]
     Active Substance: PREGABALIN
     Indication: Product used for unknown indication
     Dosage: UNK
  3. CANNABIDIOL [Concomitant]
     Active Substance: CANNABIDIOL
     Indication: Product used for unknown indication
     Dosage: UNK
  4. DESVENLAFAXINE [Concomitant]
     Active Substance: DESVENLAFAXINE
     Indication: Product used for unknown indication
     Dosage: UNK
  5. AYMEE [Concomitant]
     Indication: Product used for unknown indication
     Dosage: UNK

REACTIONS (2)
  - Orthognathic surgery [Unknown]
  - Intentional dose omission [Unknown]
